FAERS Safety Report 24678673 (Version 2)
Quarter: 2025Q1

REPORT INFORMATION
  Report Type: Report from Study
  Country: GB (occurrence: GB)
  Receive Date: 20241129
  Receipt Date: 20250113
  Transmission Date: 20250408
  Serious: Yes (Other)
  Sender: TAKEDA
  Company Number: GB-TAKEDA-2024TUS090283

PATIENT
  Sex: Female

DRUGS (2)
  1. VEDOLIZUMAB [Suspect]
     Active Substance: VEDOLIZUMAB
     Indication: Crohn^s disease
     Dosage: 108 MILLIGRAM, Q2WEEKS
  2. VEDOLIZUMAB [Suspect]
     Active Substance: VEDOLIZUMAB

REACTIONS (15)
  - Colitis [Unknown]
  - Large intestinal ulcer haemorrhage [Unknown]
  - Inflammatory marker increased [Unknown]
  - Blood glucose increased [Recovered/Resolved]
  - Stress [Unknown]
  - Fall [Recovering/Resolving]
  - Sciatica [Recovering/Resolving]
  - Migraine [Unknown]
  - Eye disorder [Unknown]
  - Productive cough [Unknown]
  - Drug ineffective [Unknown]
  - Vomiting [Unknown]
  - Back pain [Unknown]
  - Pain in extremity [Unknown]
  - Fatigue [Unknown]
